FAERS Safety Report 4565457-4 (Version None)
Quarter: 2005Q1

REPORT INFORMATION
  Report Type: 
  Country: None (occurrence: None)
  Receive Date: 20050131
  Receipt Date: 20040707
  Transmission Date: 20050727
  Serious: Yes (Death, Hospitalization, Other)
  Sender: FDA-Public Use
  Company Number: JP-MERCK-0407USA00806

PATIENT
  Age: 27 Year
  Sex: Male
  Weight: 52 kg

DRUGS (16)
  1. COSMEGEN [Suspect]
     Indication: NEUROBLASTOMA
     Route: 042
     Dates: start: 20000808, end: 20000810
  2. COSMEGEN [Suspect]
     Route: 042
     Dates: start: 20000913, end: 20000915
  3. COSMEGEN [Suspect]
     Route: 042
     Dates: start: 20001004, end: 20001006
  4. COSMEGEN [Suspect]
     Route: 042
     Dates: start: 20020101, end: 20030101
  5. ONCOVIN [Suspect]
     Indication: NEUROBLASTOMA
     Route: 042
     Dates: start: 20000808, end: 20000801
  6. ONCOVIN [Suspect]
     Route: 042
     Dates: start: 20001004, end: 20001001
  7. ONCOVIN [Suspect]
     Route: 042
     Dates: start: 20000913, end: 20000901
  8. ONCOVIN [Suspect]
     Route: 042
     Dates: start: 20020101, end: 20030101
  9. IFOMIDE [Suspect]
     Indication: NEUROBLASTOMA
     Route: 042
     Dates: start: 20000808, end: 20000812
  10. IFOMIDE [Suspect]
     Route: 042
     Dates: start: 20000913, end: 20000917
  11. IFOMIDE [Suspect]
     Route: 042
     Dates: start: 20001004, end: 20001008
  12. IFOMIDE [Suspect]
     Route: 042
     Dates: start: 20020101, end: 20030101
  13. ADRIACIN [Suspect]
     Indication: NEUROBLASTOMA
     Route: 042
     Dates: start: 20000808, end: 20000810
  14. ADRIACIN [Suspect]
     Route: 042
     Dates: start: 20000913, end: 20000915
  15. ADRIACIN [Suspect]
     Route: 042
     Dates: start: 20001004, end: 20001006
  16. ADRIACIN [Suspect]
     Route: 042
     Dates: start: 20020101, end: 20030101

REACTIONS (16)
  - ADVERSE EVENT [None]
  - ANAEMIA [None]
  - BONE MARROW DEPRESSION [None]
  - BONE PAIN [None]
  - DISSEMINATED INTRAVASCULAR COAGULATION [None]
  - HAEMOGLOBIN DECREASED [None]
  - HAEMORRHAGIC DIATHESIS [None]
  - IIIRD NERVE PARALYSIS [None]
  - METASTASES TO BONE [None]
  - METASTASES TO SPINE [None]
  - NEOPLASM RECURRENCE [None]
  - NEUROBLASTOMA [None]
  - PARAPLEGIA [None]
  - PYREXIA [None]
  - SPINAL CORD PARALYSIS [None]
  - WHITE BLOOD CELL COUNT DECREASED [None]
